FAERS Safety Report 10786600 (Version 1)
Quarter: 2015Q1

REPORT INFORMATION
  Report Type: Spontaneous
  Country: DE (occurrence: DE)
  Receive Date: 20150211
  Receipt Date: 20150211
  Transmission Date: 20150721
  Serious: Yes (Hospitalization)
  Sender: FDA-Public Use
  Company Number: DE-TEVA-538903GER

PATIENT
  Age: 65 Year
  Sex: Female
  Weight: 60 kg

DRUGS (4)
  1. HORMONES NOS [Concomitant]
     Active Substance: UNSPECIFIED INGREDIENT
     Dates: end: 200012
  2. ENALAPRIL-RATIOPHARM TABLETTEN [Suspect]
     Active Substance: ENALAPRIL
     Route: 048
     Dates: start: 200101, end: 200206
  3. ENALAPRIL-RATIOPHARM TABLETTEN [Suspect]
     Active Substance: ENALAPRIL
     Route: 048
     Dates: start: 200008, end: 200012
  4. ENALAPRIL-RATIOPHARM TABLETTEN [Suspect]
     Active Substance: ENALAPRIL
     Route: 048
     Dates: start: 200306

REACTIONS (7)
  - Polyneuropathy [Unknown]
  - Peripheral coldness [Unknown]
  - Photopsia [Unknown]
  - Hypoaesthesia [Unknown]
  - Dizziness [Unknown]
  - Peripheral coldness [Unknown]
  - Hypoaesthesia [Unknown]

NARRATIVE: CASE EVENT DATE: 200012
